FAERS Safety Report 7733787-0 (Version None)
Quarter: 2011Q3

REPORT INFORMATION
  Report Type: 
  Country: None (occurrence: None)
  Receive Date: 20110907
  Receipt Date: 20110831
  Transmission Date: 20111222
  Serious: Yes (Disabling)
  Sender: FDA-Public Use
  Company Number: PHFR2011GB05111

PATIENT
  Age: 69 Year
  Sex: Male
  Weight: 70 kg

DRUGS (5)
  1. CO-CARELDOPA [Concomitant]
     Route: 048
  2. FLUDROCORTISONE ACETATE [Concomitant]
     Route: 065
  3. LEVOTHYROXINE SODIUM [Concomitant]
     Route: 065
  4. RIVASTIGMINE [Suspect]
     Dosage: 9.5 MG
     Route: 062
     Dates: start: 20110808
  5. ROTIGOTINE [Concomitant]
     Route: 062

REACTIONS (1)
  - HICCUPS [None]
